FAERS Safety Report 8213554-4 (Version None)
Quarter: 2012Q1

REPORT INFORMATION
  Report Type: 
  Country: None (occurrence: None)
  Receive Date: 20120315
  Receipt Date: 20120103
  Transmission Date: 20120608
  Serious: Yes (Hospitalization, Other)
  Sender: FDA-Public Use
  Company Number: PHHY2012KR000652

PATIENT
  Sex: Male

DRUGS (6)
  1. CYTOXAN [Concomitant]
  2. DANAZOL [Concomitant]
  3. ANTIBIOTICS [Concomitant]
  4. EXJADE [Suspect]
     Indication: IRON OVERLOAD
     Dosage: UNK UKN, UNK
     Route: 048
     Dates: start: 20091022, end: 20110901
  5. ANTIFUNGALS [Concomitant]
  6. EXJADE [Suspect]
     Indication: MYELODYSPLASTIC SYNDROME

REACTIONS (3)
  - PYREXIA [None]
  - HAEMOGLOBIN DECREASED [None]
  - NASOPHARYNGITIS [None]
